FAERS Safety Report 6433268-0 (Version None)
Quarter: 2009Q4

REPORT INFORMATION
  Report Type: 
  Country: None (occurrence: None)
  Receive Date: 20091109
  Receipt Date: 20091105
  Transmission Date: 20100525
  Serious: Yes (Disabling)
  Sender: FDA-Public Use
  Company Number: AU-B.I. PHARMACEUTICALS,INC./RIDGEFIELD-2009-AU-00674AU

PATIENT
  Sex: Male

DRUGS (5)
  1. MICARDIS [Suspect]
     Indication: HYPERTENSION
     Dosage: 40 MG
     Route: 048
     Dates: start: 20090920, end: 20091103
  2. NEXIUM [Concomitant]
     Dates: start: 20090723
  3. FLIXOTIDE [Concomitant]
  4. PANAMAX [Concomitant]
  5. RULIDE [Concomitant]
     Dates: start: 20091016, end: 20091025

REACTIONS (2)
  - CHOKING SENSATION [None]
  - DYSARTHRIA [None]
